FAERS Safety Report 5241556-9 (Version None)
Quarter: 2007Q1

REPORT INFORMATION
  Report Type: 
  Country: None (occurrence: None)
  Receive Date: 20070212
  Receipt Date: 20070212
  Transmission Date: 20070707
  Serious: Yes (Hospitalization)
  Sender: FDA-Public Use
  Company Number: None

PATIENT
  Age: 61 Year
  Sex: Male
  Weight: 87.8 kg

DRUGS (4)
  1. WARFARIN SODIUM [Suspect]
  2. CLOPIDOGREL [Concomitant]
  3. ASPIRIN [Concomitant]
  4. ENOXAPARIN SODIUM [Concomitant]

REACTIONS (1)
  - GASTRIC ULCER HAEMORRHAGE [None]
